FAERS Safety Report 24860409 (Version 1)
Quarter: 2025Q1

REPORT INFORMATION
  Report Type: Spontaneous
  Country: PT (occurrence: PT)
  Receive Date: 20250120
  Receipt Date: 20250120
  Transmission Date: 20250408
  Serious: Yes (Hospitalization, Other)
  Sender: VIIV
  Company Number: PT-ViiV Healthcare-PT2025GSK004692

PATIENT

DRUGS (8)
  1. SULFAMERAZINE SODIUM\TRIMETHOPRIM [Suspect]
     Active Substance: SULFAMERAZINE SODIUM\TRIMETHOPRIM
     Indication: Pneumocystis jirovecii pneumonia
  2. SULFAMERAZINE SODIUM\TRIMETHOPRIM [Suspect]
     Active Substance: SULFAMERAZINE SODIUM\TRIMETHOPRIM
     Indication: Antibiotic therapy
  3. TENOFOVIR DISOPROXIL FUMARATE [Suspect]
     Active Substance: TENOFOVIR DISOPROXIL FUMARATE
     Indication: HIV infection
  4. DOLUTEGRAVIR [Suspect]
     Active Substance: DOLUTEGRAVIR
     Indication: HIV infection
  5. EMTRICITABINE [Suspect]
     Active Substance: EMTRICITABINE
     Indication: HIV infection
  6. PREDNISONE [Concomitant]
     Active Substance: PREDNISONE
     Indication: Adjuvant therapy
     Dosage: 40 MG, BID
     Route: 048
  7. PREDNISONE [Concomitant]
     Active Substance: PREDNISONE
     Dosage: 40 MG, QD
     Route: 048
  8. PREDNISONE [Concomitant]
     Active Substance: PREDNISONE
     Dosage: 20 MG, QD
     Route: 048

REACTIONS (4)
  - Haemophagocytic lymphohistiocytosis [Recovering/Resolving]
  - Hepatitis toxic [Recovering/Resolving]
  - Haematotoxicity [Recovering/Resolving]
  - Visceral leishmaniasis [Recovering/Resolving]
